FAERS Safety Report 26144681 (Version 1)
Quarter: 2025Q4

REPORT INFORMATION
  Report Type: Spontaneous
  Country: US (occurrence: None)
  Receive Date: 20251211
  Receipt Date: 20251211
  Transmission Date: 20260118
  Serious: Yes (Hospitalization)
  Sender: FDA-CTU
  Company Number: None

PATIENT
  Age: 72 Year
  Sex: Male

DRUGS (5)
  1. DURVALUMAB [Suspect]
     Active Substance: DURVALUMAB
     Dates: start: 20250923
  2. FLUOROURACIL [Suspect]
     Active Substance: FLUOROURACIL
  3. LEUCOVORIN [Suspect]
     Active Substance: LEUCOVORIN\LEUCOVORIN CALCIUM
  4. OXALIPLATIN [Suspect]
     Active Substance: OXALIPLATIN
  5. DOCETAXEL [Suspect]
     Active Substance: DOCETAXEL

REACTIONS (8)
  - Sepsis [None]
  - Pancytopenia [None]
  - Mucosal inflammation [None]
  - Colitis [None]
  - Diarrhoea [None]
  - Tachycardia [None]
  - Hypotension [None]
  - Abdominal pain [None]

NARRATIVE: CASE EVENT DATE: 20251028
